FAERS Safety Report 5717984-1 (Version None)
Quarter: 2008Q2

REPORT INFORMATION
  Report Type: 
  Country: None (occurrence: None)
  Receive Date: 20080425
  Receipt Date: 20080415
  Transmission Date: 20081010
  Serious: Yes (Other)
  Sender: FDA-Public Use
  Company Number: B0361062A

PATIENT
  Age: 57 Year
  Sex: Female

DRUGS (8)
  1. PAROXETINE HCL [Suspect]
     Dosage: 20MG PER DAY
     Route: 065
     Dates: start: 19991123, end: 20030101
  2. OMEPRAZOLE [Concomitant]
     Dosage: 10MG PER DAY
  3. TEMAZEPAM [Concomitant]
     Dosage: 20MG PER DAY
  4. LOFEPRAMINE [Concomitant]
     Dates: start: 20030120
  5. EFFEXOR [Concomitant]
     Dates: start: 20030120
  6. PROZAC [Concomitant]
     Dates: start: 20030121
  7. DIAZEPAM [Concomitant]
     Dates: start: 20030123
  8. BENZODIAZEPINE [Concomitant]

REACTIONS (11)
  - ANOREXIA [None]
  - DEPRESSED MOOD [None]
  - DEPRESSION [None]
  - DRUG WITHDRAWAL SYNDROME [None]
  - FEELING ABNORMAL [None]
  - HEADACHE [None]
  - INSOMNIA [None]
  - NAUSEA [None]
  - NIGHTMARE [None]
  - SLEEP DISORDER [None]
  - VERTIGO [None]
